FAERS Safety Report 13156996 (Version 1)
Quarter: 2017Q1

REPORT INFORMATION
  Report Type: Spontaneous
  Country: US (occurrence: US)
  Receive Date: 20170127
  Receipt Date: 20170127
  Transmission Date: 20170428
  Serious: Yes (Death, Hospitalization, Other)
  Sender: FDA-Public Use
  Company Number: US-ZYDUS-013397

PATIENT
  Age: 51 Year
  Sex: Male

DRUGS (2)
  1. BICALUTAMIDE. [Suspect]
     Active Substance: BICALUTAMIDE
     Indication: ANTIANDROGEN THERAPY
     Route: 065
  2. LEUPRORELIN [Suspect]
     Active Substance: LEUPROLIDE ACETATE
     Indication: ANTIANDROGEN THERAPY
     Route: 065

REACTIONS (13)
  - Prostatic specific antigen increased [Not Recovered/Not Resolved]
  - Fatigue [Recovering/Resolving]
  - Disease progression [Fatal]
  - Skin hyperpigmentation [Recovering/Resolving]
  - Lymphadenectomy [Not Recovered/Not Resolved]
  - Hyperadrenalism [Recovering/Resolving]
  - Cushing^s syndrome [Recovering/Resolving]
  - Pulmonary mass [Not Recovered/Not Resolved]
  - Prostate cancer [Not Recovered/Not Resolved]
  - Hypertension [Recovering/Resolving]
  - Hyperglycaemia [Recovering/Resolving]
  - Malignant transformation [Not Recovered/Not Resolved]
  - Hypokalaemia [Recovering/Resolving]
